FAERS Safety Report 8276627-6 (Version None)
Quarter: 2012Q2

REPORT INFORMATION
  Report Type: 
  Country: None (occurrence: None)
  Receive Date: 20120412
  Receipt Date: 20120402
  Transmission Date: 20120825
  Serious: Yes (Hospitalization)
  Sender: FDA-Public Use
  Company Number: PHHY2012NZ019956

PATIENT
  Sex: Male

DRUGS (1)
  1. CLOZARIL [Suspect]
     Indication: SCHIZOPHRENIA
     Dosage: 500 MG, UNK
     Dates: start: 20091125, end: 20120209

REACTIONS (9)
  - ARRHYTHMIA [None]
  - C-REACTIVE PROTEIN INCREASED [None]
  - ATRIAL FIBRILLATION [None]
  - PALLOR [None]
  - HEART RATE INCREASED [None]
  - ELECTROCARDIOGRAM ABNORMAL [None]
  - BLOOD CREATINE PHOSPHOKINASE INCREASED [None]
  - PALPITATIONS [None]
  - DIZZINESS [None]
